FAERS Safety Report 24004808 (Version 1)
Quarter: 2024Q2

REPORT INFORMATION
  Report Type: Spontaneous
  Country: US (occurrence: None)
  Receive Date: 20240621
  Receipt Date: 20240621
  Transmission Date: 20240716
  Serious: Yes (Life-Threatening, Disabling, Other)
  Sender: FDA-Public Use
  Company Number: None

PATIENT
  Age: 44 Year
  Sex: Female
  Weight: 57.6 kg

DRUGS (7)
  1. DROPERIDOL [Suspect]
     Active Substance: DROPERIDOL
     Indication: Urinary tract infection
     Dates: start: 20240616, end: 20240616
  2. BENADRYL [Suspect]
     Active Substance: DIPHENHYDRAMINE HYDROCHLORIDE
  3. DIASEPAM [Concomitant]
  4. HYDROCODONE [Concomitant]
     Active Substance: HYDROCODONE
  5. ESTRADIOL [Concomitant]
     Active Substance: ESTRADIOL
  6. TESTOSTERONE [Concomitant]
     Active Substance: TESTOSTERONE
  7. COMPAZINE [Suspect]
     Active Substance: PROCHLORPERAZINE MALEATE

REACTIONS (11)
  - Off label use [None]
  - Anxiety [None]
  - Near death experience [None]
  - Dyskinesia [None]
  - Incorrect drug administration rate [None]
  - Dyskinesia [None]
  - Restlessness [None]
  - Myalgia [None]
  - Insomnia [None]
  - Palpitations [None]
  - Product complaint [None]

NARRATIVE: CASE EVENT DATE: 20240616
